FAERS Safety Report 18064808 (Version 1)
Quarter: 2020Q3

REPORT INFORMATION
  Report Type: Spontaneous
  Country: US (occurrence: US)
  Receive Date: 20200723
  Receipt Date: 20200723
  Transmission Date: 20201103
  Serious: Yes (Hospitalization)
  Sender: FDA-Public Use
  Company Number: None

PATIENT
  Age: 89 Year
  Sex: Female

DRUGS (1)
  1. DEFERASIROX 500MG ACTAVIS [Suspect]
     Active Substance: DEFERASIROX
     Indication: MYELODYSPLASTIC SYNDROME
     Route: 048
     Dates: start: 20200620

REACTIONS (2)
  - Cystitis [None]
  - Nephrolithiasis [None]

NARRATIVE: CASE EVENT DATE: 20200628
